FAERS Safety Report 13861557 (Version 4)
Quarter: 2017Q4

REPORT INFORMATION
  Report Type: Spontaneous
  Country: BR (occurrence: BR)
  Receive Date: 20170811
  Receipt Date: 20171017
  Transmission Date: 20180320
  Serious: Yes (Hospitalization, Other)
  Sender: FDA-Public Use
  Company Number: BR-BRISTOL-MYERS SQUIBB COMPANY-BMS-2017-072250

PATIENT
  Sex: Female

DRUGS (1)
  1. YERVOY [Suspect]
     Active Substance: IPILIMUMAB
     Indication: MALIGNANT MELANOMA
     Dosage: 277 MG, Q3WK
     Route: 042
     Dates: start: 20170630, end: 20170901

REACTIONS (12)
  - Adrenal disorder [Unknown]
  - Vaginal haemorrhage [Recovered/Resolved]
  - Autoimmune colitis [Unknown]
  - Hyperglycaemia [Unknown]
  - Pain [Unknown]
  - Autoimmune hepatitis [Unknown]
  - Diarrhoea [Unknown]
  - Malignant neoplasm progression [Unknown]
  - Toxicity to various agents [Unknown]
  - Weight decreased [Unknown]
  - Vomiting [Unknown]
  - Nausea [Unknown]
